FAERS Safety Report 4993083-1 (Version None)
Quarter: 2006Q1

REPORT INFORMATION
  Report Type: 
  Country: None (occurrence: None)
  Receive Date: 20060313
  Receipt Date: 20051216
  Transmission Date: 20060701
  Serious: No
  Sender: FDA-Public Use
  Company Number: 2005-BP-21527BP

PATIENT
  Sex: Male

DRUGS (1)
  1. SPIRIVA [Suspect]
     Indication: CHRONIC OBSTRUCTIVE PULMONARY DISEASE
     Dosage: 18 MCG(18 MCG),IH
     Dates: start: 20051213

REACTIONS (1)
  - DYSPNOEA EXACERBATED [None]
